FAERS Safety Report 6429627-2 (Version None)
Quarter: 2009Q4

REPORT INFORMATION
  Report Type: 
  Country: None (occurrence: None)
  Receive Date: 20091103
  Receipt Date: 20091019
  Transmission Date: 20100525
  Serious: No
  Sender: FDA-Public Use
  Company Number: 02100-JPN-05-0523

PATIENT
  Age: 68 Year
  Sex: Female
  Weight: 44 kg

DRUGS (7)
  1. PLETAL [Suspect]
     Indication: CEREBRAL INFARCTION
     Dosage: 81 MG, QD ORAL
     Route: 048
     Dates: start: 20050510, end: 20051028
  2. PLETAL [Suspect]
     Indication: CEREBRAL INFARCTION
     Dosage: 81 MG, QD ORAL
     Route: 048
     Dates: start: 20051108
  3. DEXALTIN 9DEXAMETHASONE) OINTMENT, CREAM [Concomitant]
  4. DASEN (SERRAPEPTASE) TABLET [Concomitant]
  5. MYONAL (EPERISONE HYDROCHLORIDE) UNKNOWN [Concomitant]
  6. PL (NON-PYRINE PREPARATION FOR COLD SYNDROME) GRANULE [Concomitant]
  7. ISODINE GARGLE (POVIDONE IODINE) MOUTHWASH [Concomitant]

REACTIONS (2)
  - GASTRITIS ATROPHIC [None]
  - IRON DEFICIENCY ANAEMIA [None]
